FAERS Safety Report 22955732 (Version 3)
Quarter: 2023Q4

REPORT INFORMATION
  Report Type: Spontaneous
  Country: US (occurrence: US)
  Receive Date: 20230919
  Receipt Date: 20231106
  Transmission Date: 20240110
  Serious: Yes (Other)
  Sender: FDA-Public Use
  Company Number: US-ABBVIE-5406978

PATIENT
  Sex: Female
  Weight: 61 kg

DRUGS (1)
  1. LILETTA [Suspect]
     Active Substance: LEVONORGESTREL
     Indication: Contraception
     Dosage: FORM STRENGTH: 52 MILLIGRAM
     Route: 015
     Dates: start: 202112, end: 202112

REACTIONS (8)
  - Device breakage [Not Recovered/Not Resolved]
  - Bacterial vaginosis [Recovered/Resolved]
  - Bacterial vaginosis [Recovered/Resolved]
  - Nausea [Not Recovered/Not Resolved]
  - Mood swings [Not Recovered/Not Resolved]
  - Headache [Not Recovered/Not Resolved]
  - Dizziness [Not Recovered/Not Resolved]
  - Bacterial vaginosis [Recovered/Resolved]

NARRATIVE: CASE EVENT DATE: 20220101
